FAERS Safety Report 8430814-2 (Version None)
Quarter: 2012Q2

REPORT INFORMATION
  Report Type: 
  Country: None (occurrence: None)
  Receive Date: 20120612
  Receipt Date: 20120605
  Transmission Date: 20120825
  Serious: Yes (Hospitalization)
  Sender: FDA-Public Use
  Company Number: FR-TEVA-335002USA

PATIENT
  Sex: Female
  Weight: 33.596 kg

DRUGS (2)
  1. TREANDA [Suspect]
     Dosage: 318 MILLIGRAM;
     Route: 042
     Dates: start: 20120404
  2. RITUXIMAB [Suspect]
     Dosage: 664 MILLIGRAM;

REACTIONS (1)
  - PULMONARY EMBOLISM [None]
